FAERS Safety Report 8261986-0 (Version None)
Quarter: 2012Q2

REPORT INFORMATION
  Report Type: 
  Country: None (occurrence: None)
  Receive Date: 20120405
  Receipt Date: 20120330
  Transmission Date: 20120825
  Serious: Yes (Other)
  Sender: FDA-Public Use
  Company Number: US-PFIZER INC-2011301257

PATIENT
  Sex: Male
  Weight: 68.027 kg

DRUGS (4)
  1. ROBITUSSIN PEAK COLD COUGH PLUS CHEST CONGESTION DM [Suspect]
     Indication: NASAL CONGESTION
  2. LISINOPRIL AND HYDROCHLOROTHIAZIDE [Concomitant]
     Indication: HYPERTENSION
     Dosage: 40/25 MG, DAILY
  3. ROBITUSSIN PEAK COLD COUGH PLUS CHEST CONGESTION DM [Suspect]
     Indication: COUGH
     Dosage: UNK
     Dates: start: 20111101, end: 20110101
  4. SIMVASTATIN [Concomitant]
     Indication: BLOOD CHOLESTEROL ABNORMAL
     Dosage: 10 MG, DAILY

REACTIONS (12)
  - SYNCOPE [None]
  - PRODUCT CONTAMINATION MICROBIAL [None]
  - PRODUCT CONTAMINATION PHYSICAL [None]
  - BLOOD PRESSURE INCREASED [None]
  - ANGINA PECTORIS [None]
  - DIZZINESS [None]
  - POOR QUALITY DRUG ADMINISTERED [None]
  - HYPERTENSION [None]
  - WEIGHT DECREASED [None]
  - PRODUCT QUALITY ISSUE [None]
  - MALAISE [None]
  - INSOMNIA [None]
